FAERS Safety Report 18115662 (Version 1)
Quarter: 2020Q3

REPORT INFORMATION
  Report Type: Spontaneous
  Country: US (occurrence: US)
  Receive Date: 20200805
  Receipt Date: 20200805
  Transmission Date: 20201103
  Serious: Yes (Hospitalization, Other)
  Sender: FDA-Public Use
  Company Number: US-ASTRAZENECA-2020SE95731

PATIENT
  Age: 20254 Day
  Sex: Male
  Weight: 153.3 kg

DRUGS (47)
  1. GABAPENTIN. [Concomitant]
     Active Substance: GABAPENTIN
     Dates: start: 20170612
  2. AMLODIPINE BESYLATE. [Concomitant]
     Active Substance: AMLODIPINE BESYLATE
     Dates: start: 20130305
  3. OXYCODONE [Concomitant]
     Active Substance: OXYCODONE
     Dates: start: 20160412
  4. PRECEDEX [Concomitant]
     Active Substance: DEXMEDETOMIDINE HYDROCHLORIDE
  5. PRADAXA [Concomitant]
     Active Substance: DABIGATRAN ETEXILATE MESYLATE
     Dates: start: 20170221
  6. BYSTOLIC [Concomitant]
     Active Substance: NEBIVOLOL HYDROCHLORIDE
     Dates: start: 20170505
  7. VENTOLIN [Concomitant]
     Active Substance: ALBUTEROL SULFATE
     Dates: start: 20130305
  8. CLEOCIN [Concomitant]
     Active Substance: CLINDAMYCIN PHOSPHATE
  9. TRANDATE [Concomitant]
     Active Substance: LABETALOL HYDROCHLORIDE
  10. PERIDEX [Concomitant]
     Active Substance: CHLORHEXIDINE GLUCONATE
  11. PRAVASTATIN. [Concomitant]
     Active Substance: PRAVASTATIN
     Dates: start: 20170327
  12. DOXYCYCLINE. [Concomitant]
     Active Substance: DOXYCYCLINE
     Dates: start: 20180112
  13. LEVOFLOXACIN. [Concomitant]
     Active Substance: LEVOFLOXACIN
     Dates: start: 20151209
  14. DAPAGLIFLOZIN. [Concomitant]
     Active Substance: DAPAGLIFLOZIN
     Dates: start: 20151226
  15. PITRESSIN [Concomitant]
     Active Substance: VASOPRESSIN
  16. LOPRESSOR [Concomitant]
     Active Substance: METOPROLOL TARTRATE
  17. COREG [Concomitant]
     Active Substance: CARVEDILOL
  18. FARXIGA [Suspect]
     Active Substance: DAPAGLIFLOZIN PROPANEDIOL
     Indication: DIABETES MELLITUS
     Route: 048
     Dates: start: 20140922
  19. GABAPENTIN. [Concomitant]
     Active Substance: GABAPENTIN
     Dates: start: 20170324
  20. FUROSEMIDE. [Concomitant]
     Active Substance: FUROSEMIDE
     Dates: start: 20170407
  21. MUPIROCIN. [Concomitant]
     Active Substance: MUPIROCIN
     Dates: start: 20171101
  22. CEPHALEXIN. [Concomitant]
     Active Substance: CEPHALEXIN
     Dates: start: 20130305
  23. PRAVASTATIN SODIUM. [Concomitant]
     Active Substance: PRAVASTATIN SODIUM
     Dates: start: 20160127
  24. SUBLIMAZE [Concomitant]
     Active Substance: FENTANYL CITRATE
  25. FLUCONAZOLE. [Concomitant]
     Active Substance: FLUCONAZOLE
     Dates: start: 20160412
  26. PRAVACHOL [Concomitant]
     Active Substance: PRAVASTATIN SODIUM
     Dates: start: 20151226
  27. AZACTAM [Concomitant]
     Active Substance: AZTREONAM
     Dates: start: 20151226
  28. VANCOCIN [Concomitant]
     Active Substance: VANCOMYCIN HYDROCHLORIDE
  29. PROTONIX [Concomitant]
     Active Substance: PANTOPRAZOLE SODIUM
  30. LEVOPHED [Concomitant]
     Active Substance: NOREPINEPHRINE BITARTRATE
  31. TYLENOL [Concomitant]
     Active Substance: ACETAMINOPHEN
  32. NARCAN [Concomitant]
     Active Substance: NALOXONE HYDROCHLORIDE
  33. SILVER SULFADIAZIN [Concomitant]
     Active Substance: SILVER SULFADIAZINE
     Dates: start: 20170307
  34. EDARBYCLOR [Concomitant]
     Active Substance: AZILSARTAN KAMEDOXOMIL\CHLORTHALIDONE
     Dates: start: 20170324
  35. JANUVIA [Concomitant]
     Active Substance: SITAGLIPTIN PHOSPHATE
     Dates: start: 20171025
  36. XARELTO [Concomitant]
     Active Substance: RIVAROXABAN
     Dates: start: 20180301
  37. AMOX [Concomitant]
     Active Substance: UNSPECIFIED INGREDIENT
     Dates: start: 20180301
  38. SPIRONOLACTONE. [Concomitant]
     Active Substance: SPIRONOLACTONE
     Dates: start: 20130305
  39. GLUCAGEN [Concomitant]
     Active Substance: GLUCAGON HYDROCHLORIDE
  40. NEURONTIN [Concomitant]
     Active Substance: GABAPENTIN
  41. DILAUDID [Concomitant]
     Active Substance: HYDROMORPHONE HYDROCHLORIDE
  42. DIPRIVAN [Concomitant]
     Active Substance: PROPOFOL
  43. SULFAMETHOXAZOLE [Concomitant]
     Active Substance: SULFAMETHOXAZOLE
     Dates: start: 20171023
  44. CLONIDINE HCL [Concomitant]
     Active Substance: CLONIDINE HYDROCHLORIDE
     Dates: start: 20160829
  45. APRESOLINE HYDROCHLORIDE [Concomitant]
     Active Substance: HYDRALAZINE HYDROCHLORIDE
  46. BREVIBLOC [Concomitant]
     Active Substance: ESMOLOL HYDROCHLORIDE
  47. CARDENE [Concomitant]
     Active Substance: NICARDIPINE HYDROCHLORIDE

REACTIONS (2)
  - Fournier^s gangrene [Unknown]
  - Necrotising soft tissue infection [Unknown]

NARRATIVE: CASE EVENT DATE: 20151210
